FAERS Safety Report 21209114 (Version 8)
Quarter: 2022Q4

REPORT INFORMATION
  Report Type: Report from Study
  Country: FR (occurrence: FR)
  Receive Date: 20220812
  Receipt Date: 20221213
  Transmission Date: 20230113
  Serious: Yes (Other)
  Sender: FDA-Public Use
  Company Number: FR-GILEAD-2022-0585127

PATIENT
  Sex: Female
  Weight: 53 kg

DRUGS (7)
  1. SACITUZUMAB GOVITECAN [Suspect]
     Active Substance: SACITUZUMAB GOVITECAN
     Indication: Triple negative breast cancer
     Dosage: 10 MG/KG C1D1 AND C1D8
     Route: 042
     Dates: start: 20220427, end: 20220504
  2. SACITUZUMAB GOVITECAN [Suspect]
     Active Substance: SACITUZUMAB GOVITECAN
     Dosage: 10 MG/KG C2D1
     Route: 042
     Dates: start: 20220519
  3. SACITUZUMAB GOVITECAN [Suspect]
     Active Substance: SACITUZUMAB GOVITECAN
     Dosage: 10 MG/KG C3D1 AND D8
     Route: 042
     Dates: start: 20220608, end: 20220615
  4. SACITUZUMAB GOVITECAN [Suspect]
     Active Substance: SACITUZUMAB GOVITECAN
     Dosage: 10 MG/KG C4D1 AND D8
     Route: 042
     Dates: start: 20220629, end: 20220706
  5. SACITUZUMAB GOVITECAN [Suspect]
     Active Substance: SACITUZUMAB GOVITECAN
     Dosage: 8 MG/KG D1 AND D8
     Route: 042
  6. SACITUZUMAB GOVITECAN [Suspect]
     Active Substance: SACITUZUMAB GOVITECAN
     Dosage: 8 MG/KG C5D1 AND D8
     Route: 042
     Dates: start: 20220720, end: 20220727
  7. SACITUZUMAB GOVITECAN [Suspect]
     Active Substance: SACITUZUMAB GOVITECAN
     Dosage: 8 MG/KG C6D1, TX STOPPED
     Route: 042
     Dates: start: 20220810, end: 20220826

REACTIONS (12)
  - Cholestasis [Not Recovered/Not Resolved]
  - Anaemia [Not Recovered/Not Resolved]
  - Aspartate aminotransferase increased [Not Recovered/Not Resolved]
  - Alanine aminotransferase increased [Not Recovered/Not Resolved]
  - Alanine aminotransferase increased [Not Recovered/Not Resolved]
  - Gamma-glutamyltransferase increased [Not Recovered/Not Resolved]
  - Bone pain [Not Recovered/Not Resolved]
  - Liver function test abnormal [Not Recovered/Not Resolved]
  - Neoplasm [Not Recovered/Not Resolved]
  - Off label use [Recovered/Resolved]
  - Inappropriate schedule of product administration [Unknown]
  - Liver disorder [Not Recovered/Not Resolved]

NARRATIVE: CASE EVENT DATE: 20220501
